FAERS Safety Report 5889976-3 (Version None)
Quarter: 2008Q3

REPORT INFORMATION
  Report Type: 
  Country: None (occurrence: None)
  Receive Date: 20080919
  Receipt Date: 20080908
  Transmission Date: 20090109
  Serious: Yes (Other)
  Sender: FDA-Public Use
  Company Number: BR-PFIZER INC-2008076225

PATIENT
  Sex: Male
  Weight: 70 kg

DRUGS (3)
  1. DETRUSITOL LA [Suspect]
     Indication: HYPERTONIC BLADDER
     Dosage: DAILY DOSE:4MG
     Route: 048
     Dates: start: 20080906
  2. ATENOLOL [Concomitant]
     Route: 065
     Dates: start: 19930101
  3. UNOPROST [Concomitant]
     Route: 065
     Dates: start: 20080905

REACTIONS (4)
  - ABDOMINAL PAIN [None]
  - ANAL HAEMORRHAGE [None]
  - DRY MOUTH [None]
  - URINARY RETENTION [None]
